FAERS Safety Report 8377566-2 (Version None)
Quarter: 2012Q2

REPORT INFORMATION
  Report Type: 
  Country: None (occurrence: None)
  Receive Date: 20120522
  Receipt Date: 20120516
  Transmission Date: 20120825
  Serious: Yes (Other)
  Sender: FDA-Public Use
  Company Number: JP-PFIZER INC-2012118544

PATIENT
  Age: 57 Year
  Sex: Male

DRUGS (1)
  1. TEMSIROLIMUS [Suspect]
     Indication: METASTATIC RENAL CELL CARCINOMA
     Dosage: 25 MG, CYCLIC, WEEKLY
     Route: 042
     Dates: start: 20120126, end: 20120209

REACTIONS (1)
  - PNEUMOCYSTIS JIROVECI PNEUMONIA [None]
